FAERS Safety Report 8053960-4 (Version None)
Quarter: 2012Q1

REPORT INFORMATION
  Report Type: 
  Country: None (occurrence: None)
  Receive Date: 20120118
  Receipt Date: 20120103
  Transmission Date: 20120608
  Serious: No
  Sender: FDA-Public Use
  Company Number: IE-B.I. PHARMACEUTICALS,INC./RIDGEFIELD-2011-UK-01262UK

PATIENT

DRUGS (1)
  1. PRADAXA [Suspect]

REACTIONS (1)
  - NO ADVERSE EVENT [None]
